FAERS Safety Report 9172467 (Version 1)
Quarter: 2013Q1

REPORT INFORMATION
  Report Type: Report from Study
  Country: MX (occurrence: MX)
  Receive Date: 20130319
  Receipt Date: 20130319
  Transmission Date: 20140127
  Serious: Yes (Hospitalization, Other)
  Sender: FDA-Public Use
  Company Number: MX-AMGEN-MEXNI2013019157

PATIENT
  Age: 55 Year
  Sex: Female
  Weight: 60 kg

DRUGS (2)
  1. FILGRASTIM [Suspect]
     Indication: NEUTROPENIA
     Dosage: 300 MUG, CYCLICAL
     Route: 065
  2. CHEMOTHERAPEUTICS [Concomitant]

REACTIONS (2)
  - Neutropenia [Unknown]
  - Bone pain [Unknown]
